FAERS Safety Report 19809385 (Version 1)
Quarter: 2021Q3

REPORT INFORMATION
  Report Type: Spontaneous
  Country: US (occurrence: US)
  Receive Date: 20210908
  Receipt Date: 20210908
  Transmission Date: 20211014
  Serious: Yes (Hospitalization)
  Sender: FDA-Public Use
  Company Number: US-FRESENIUS KABI-FK202109547

PATIENT
  Age: 26 Year
  Sex: Female

DRUGS (3)
  1. METHADONE [Suspect]
     Active Substance: METHADONE HYDROCHLORIDE
     Indication: DRUG USE DISORDER
     Route: 065
  2. METHADONE [Suspect]
     Active Substance: METHADONE HYDROCHLORIDE
     Route: 065
  3. NAFCILLIN [Suspect]
     Active Substance: NAFCILLIN SODIUM
     Indication: SEPTIC EMBOLUS
     Route: 065

REACTIONS (2)
  - Drug interaction [Unknown]
  - Withdrawal syndrome [Unknown]
